FAERS Safety Report 18544430 (Version 2)
Quarter: 2020Q4

REPORT INFORMATION
  Report Type: Spontaneous
  Country: AU (occurrence: AU)
  Receive Date: 20201125
  Receipt Date: 20201203
  Transmission Date: 20210114
  Serious: Yes (Life-Threatening, Other)
  Sender: FDA-Public Use
  Company Number: AU-PFIZER INC-2020458904

PATIENT
  Age: 49 Year
  Sex: Female

DRUGS (1)
  1. HEPARIN SODIUM. [Suspect]
     Active Substance: HEPARIN SODIUM
     Indication: MITRAL VALVE PROLAPSE
     Dosage: UNK (INFUSION)

REACTIONS (3)
  - Thrombosis [Unknown]
  - Mitral valve thickening [Unknown]
  - Mitral valve incompetence [Unknown]
